FAERS Safety Report 8959830 (Version 1)
Quarter: 2012Q4

REPORT INFORMATION
  Report Type: 
  Country: US (occurrence: US)
  Receive Date: 20121212
  Receipt Date: 20121212
  Transmission Date: 20130627
  Serious: No
  Sender: FDA-Public Use
  Company Number: US-TEVA-316648USA

PATIENT
  Sex: Male
  Weight: 96.25 kg

DRUGS (12)
  1. BUDESONIDE [Suspect]
     Indication: CHRONIC OBSTRUCTIVE PULMONARY DISEASE
     Dates: start: 20111202
  2. BROVANA [Suspect]
     Indication: CHRONIC OBSTRUCTIVE PULMONARY DISEASE
  3. CYANOCOBALAMIN [Concomitant]
     Dates: start: 201109
  4. CANDESARTAN CILEXETIL [Concomitant]
  5. CLOPIDOGREL [Concomitant]
  6. SALBUTAMOL [Concomitant]
     Dates: end: 20111202
  7. ACETYLSALICYLIC ACID [Concomitant]
  8. CALCIUM [Concomitant]
  9. ERGOCALCIFEROL [Concomitant]
  10. OMEPRAZOLE [Concomitant]
  11. METFORMIN [Concomitant]
     Dates: start: 201109
  12. SERETIDE [Concomitant]

REACTIONS (2)
  - Pruritus generalised [Not Recovered/Not Resolved]
  - Drug administration error [Unknown]
